FAERS Safety Report 8232028-8 (Version None)
Quarter: 2012Q1

REPORT INFORMATION
  Report Type: 
  Country: None (occurrence: None)
  Receive Date: 20120323
  Receipt Date: 20120313
  Transmission Date: 20120608
  Serious: Yes (Hospitalization, Other)
  Sender: FDA-Public Use
  Company Number: FR-JNJFOC-20120109398

PATIENT
  Age: 69 Year
  Sex: Male

DRUGS (2)
  1. REMICADE [Suspect]
     Dosage: 10 YEARS
     Route: 042
     Dates: start: 20111104
  2. REMICADE [Suspect]
     Indication: ANKYLOSING SPONDYLITIS
     Route: 042
     Dates: start: 20040101

REACTIONS (7)
  - COUGH [None]
  - IRITIS [None]
  - INFECTION [None]
  - GENERAL PHYSICAL CONDITION ABNORMAL [None]
  - ASTHENIA [None]
  - PULMONARY SARCOIDOSIS [None]
  - DECREASED APPETITE [None]
